FAERS Safety Report 11167322 (Version 2)
Quarter: 2015Q2

REPORT INFORMATION
  Report Type: Report from Study
  Country: US (occurrence: US)
  Receive Date: 20150605
  Receipt Date: 20150613
  Transmission Date: 20150821
  Serious: Yes (Other)
  Sender: FDA-Public Use
  Company Number: US-BIOGENIDEC-2015BI075924

PATIENT
  Sex: Female
  Weight: 85 kg

DRUGS (10)
  1. FISH OIL [Concomitant]
     Active Substance: FISH OIL
  2. CHOLECALCIFEROL [Concomitant]
     Active Substance: CHOLECALCIFEROL
  3. CINNAMON. [Concomitant]
     Active Substance: CINNAMON
  4. ESCITALOPRAM OXALATE. [Concomitant]
     Active Substance: ESCITALOPRAM OXALATE
  5. COENZYME Q10 [Concomitant]
     Active Substance: UBIDECARENONE
     Dates: end: 2015
  6. VITAMIN B12 [Concomitant]
     Active Substance: CYANOCOBALAMIN
  7. LOSARTAN POTASSIUM. [Concomitant]
     Active Substance: LOSARTAN POTASSIUM
  8. AVONEX [Suspect]
     Active Substance: INTERFERON BETA-1A
     Indication: MULTIPLE SCLEROSIS
     Route: 030
     Dates: start: 201106
  9. HORSE CHESTNUT [Concomitant]
     Active Substance: HORSE CHESTNUT
  10. FLAXSEED [Concomitant]
     Active Substance: FLAX SEED

REACTIONS (3)
  - Influenza like illness [Unknown]
  - Basal cell carcinoma [Recovered/Resolved]
  - Injection site discomfort [Recovered/Resolved]
